FAERS Safety Report 9390316 (Version 1)
Quarter: 2013Q3

REPORT INFORMATION
  Report Type: Spontaneous
  Country: GB (occurrence: GB)
  Receive Date: 20130709
  Receipt Date: 20130709
  Transmission Date: 20140515
  Serious: Yes (Other)
  Sender: FDA-Public Use
  Company Number: GB-ROCHE-1244575

PATIENT
  Age: 60 Year
  Sex: Male

DRUGS (4)
  1. RIBAVIRIN [Suspect]
     Indication: HEPATITIS C
     Route: 065
     Dates: start: 201205
  2. PEGASYS [Suspect]
     Indication: HEPATITIS C
     Route: 065
     Dates: start: 201205
  3. INCIVO [Suspect]
     Indication: HEPATITIS C
     Route: 048
     Dates: start: 201205
  4. RALTEGRAVIR [Concomitant]
     Indication: HIV INFECTION
     Route: 065
     Dates: start: 201110

REACTIONS (5)
  - CD4 lymphocytes decreased [Unknown]
  - Blood creatinine increased [Recovered/Resolved]
  - Rash [Unknown]
  - Fatigue [Unknown]
  - Haemoglobin decreased [Unknown]
